APPROVED DRUG PRODUCT: YEZTUGO
Active Ingredient: LENACAPAVIR SODIUM
Strength: EQ 300MG BASE
Dosage Form/Route: TABLET;ORAL
Application: N220020 | Product #001
Applicant: GILEAD SCIENCES INC
Approved: Jun 18, 2025 | RLD: Yes | RS: Yes | Type: RX

PATENTS:
Patent 9951043 | Expires: Feb 28, 2034
Patent 10071985 | Expires: Aug 17, 2037
Patent 11267799 | Expires: Aug 16, 2038

EXCLUSIVITY:
Code: NCE | Date: Dec 22, 2027
Code: NP | Date: Jun 18, 2028